FAERS Safety Report 26185061 (Version 1)
Quarter: 2025Q4

REPORT INFORMATION
  Report Type: Spontaneous
  Country: EU (occurrence: EU)
  Receive Date: 20251222
  Receipt Date: 20251222
  Transmission Date: 20260118
  Serious: Yes (Hospitalization, Other)
  Sender: ALKEM
  Company Number: None

PATIENT
  Age: 56 Year
  Sex: Male

DRUGS (1)
  1. SILDENAFIL [Suspect]
     Active Substance: SILDENAFIL
     Indication: Product used for unknown indication
     Dosage: 1 DOSAGE FORM, ONCE (TOTAL) (TABLETS)
     Route: 065

REACTIONS (10)
  - Circulatory collapse [Recovered/Resolved]
  - Methaemoglobinaemia [Recovered/Resolved]
  - Syncope [Recovered/Resolved]
  - Fall [Recovered/Resolved]
  - Head injury [Recovered/Resolved]
  - Face injury [Recovered/Resolved]
  - Lip injury [Recovered/Resolved]
  - Vertigo [Recovered/Resolved]
  - Orthostatic intolerance [Recovered/Resolved]
  - Headache [Recovered/Resolved]
